FAERS Safety Report 24358386 (Version 2)
Quarter: 2025Q2

REPORT INFORMATION
  Report Type: Report from Study
  Country: US (occurrence: US)
  Receive Date: 20240924
  Receipt Date: 20250514
  Transmission Date: 20250717
  Serious: Yes (Hospitalization)
  Sender: PFIZER
  Company Number: US-PFIZER INC-202400260371

PATIENT
  Age: 60 Year
  Sex: Male

DRUGS (11)
  1. BRAFTOVI [Suspect]
     Active Substance: ENCORAFENIB
     Dosage: 4 CAPSULES BY MOUTH DAILY AT THE SAME TIME EACH DAY
     Route: 048
     Dates: start: 20240821
  2. BRAFTOVI [Suspect]
     Active Substance: ENCORAFENIB
     Dosage: 300MG (4 CAPSULES) BY MOUTH ONCE DAILY
     Route: 048
     Dates: start: 20240826, end: 20241218
  3. ERBITUX [Concomitant]
     Active Substance: CETUXIMAB
  4. PROCHLORPERAZINE [Concomitant]
     Active Substance: PROCHLORPERAZINE
  5. AMLODIPINE [Concomitant]
     Active Substance: AMLODIPINE BESYLATE
  6. LISINOPRIL [Concomitant]
     Active Substance: LISINOPRIL
  7. ATORVASTATIN [Concomitant]
     Active Substance: ATORVASTATIN
  8. ONDANSETRON [Concomitant]
     Active Substance: ONDANSETRON
  9. MINOCYCLINE [Concomitant]
     Active Substance: MINOCYCLINE HYDROCHLORIDE
  10. SPIRONOLACTONE [Concomitant]
     Active Substance: SPIRONOLACTONE
  11. ELIQUIS [Concomitant]
     Active Substance: APIXABAN

REACTIONS (2)
  - Dehydration [Recovered/Resolved]
  - Product dose omission issue [Unknown]

NARRATIVE: CASE EVENT DATE: 20240912
